FAERS Safety Report 7782846-5 (Version None)
Quarter: 2011Q3

REPORT INFORMATION
  Report Type: 
  Country: None (occurrence: None)
  Receive Date: 20110928
  Receipt Date: 20110915
  Transmission Date: 20111222
  Serious: Yes (Other)
  Sender: FDA-Public Use
  Company Number: US-BAYER-2011-087393

PATIENT
  Sex: Female

DRUGS (1)
  1. ASPIRIN [Suspect]
     Dosage: 500 MG, ONCE
     Route: 048
     Dates: start: 20110915

REACTIONS (3)
  - CHOKING [None]
  - FOREIGN BODY [None]
  - THROAT IRRITATION [None]
